FAERS Safety Report 9348225 (Version 1)
Quarter: 2013Q2

REPORT INFORMATION
  Report Type: Spontaneous
  Country: US (occurrence: None)
  Receive Date: 20130612
  Receipt Date: 20130612
  Transmission Date: 20140414
  Serious: Yes (Other)
  Sender: FDA-Public Use
  Company Number: None

PATIENT
  Age: 41 Year
  Sex: Male
  Weight: 81.65 kg

DRUGS (1)
  1. KETEK [Suspect]
     Indication: BRONCHITIS
     Route: 048

REACTIONS (3)
  - Oral pain [None]
  - Aphthous stomatitis [None]
  - Stomatitis [None]
